FAERS Safety Report 22074598 (Version 2)
Quarter: 2023Q2

REPORT INFORMATION
  Report Type: Spontaneous
  Country: US (occurrence: US)
  Receive Date: 20230308
  Receipt Date: 20230407
  Transmission Date: 20230722
  Serious: Yes (Other)
  Sender: FDA-Public Use
  Company Number: US-PFIZER INC-PV202300042912

PATIENT
  Age: 74 Year
  Sex: Female

DRUGS (2)
  1. XELJANZ [Suspect]
     Active Substance: TOFACITINIB CITRATE
     Indication: Rheumatoid arthritis
     Dosage: 5 MG, 1X/DAY (FOR 1 WEEK)
     Route: 048
     Dates: start: 20230302
  2. XELJANZ [Suspect]
     Active Substance: TOFACITINIB CITRATE
     Dosage: 5 MG, 2X/DAY
     Route: 048
     Dates: start: 202303

REACTIONS (4)
  - Rheumatoid arthritis [Unknown]
  - Skin atrophy [Unknown]
  - Contusion [Unknown]
  - Off label use [Unknown]

NARRATIVE: CASE EVENT DATE: 20230302
